FAERS Safety Report 21422355 (Version 8)
Quarter: 2022Q4

REPORT INFORMATION
  Report Type: Spontaneous
  Country: US (occurrence: US)
  Receive Date: 20221007
  Receipt Date: 20221224
  Transmission Date: 20230113
  Serious: Yes (Hospitalization, Other)
  Sender: FDA-Public Use
  Company Number: US-UNITED THERAPEUTICS-UNT-2022-022854

PATIENT
  Sex: Female

DRUGS (10)
  1. REMODULIN [Suspect]
     Active Substance: TREPROSTINIL
     Indication: Pulmonary arterial hypertension
     Dosage: UNK, CONTINUING
     Route: 041
     Dates: start: 202104
  2. REMODULIN [Suspect]
     Active Substance: TREPROSTINIL
     Dosage: 0.162 ?G/KG, CONTINUING
     Route: 041
  3. REMODULIN [Suspect]
     Active Substance: TREPROSTINIL
     Dosage: 0.172 ?G/KG, CONTINUING
     Route: 041
  4. REMODULIN [Suspect]
     Active Substance: TREPROSTINIL
     Dosage: 0.200 ?G/KG, CONTINUING (AT A PUMP RATE OF 43 ML/24 HR)
     Route: 041
     Dates: start: 20221012
  5. REMODULIN [Suspect]
     Active Substance: TREPROSTINIL
     Dosage: 0.238 ?G/KG, CONTINUING (AT A PUMP RATE OF 43 ML/24 HR)
     Route: 041
  6. REMODULIN [Suspect]
     Active Substance: TREPROSTINIL
     Dosage: 0.213 ?G/KG, CONTINUING
     Route: 041
  7. REMODULIN [Suspect]
     Active Substance: TREPROSTINIL
     Dosage: 0.210 ?G/KG, CONTINUING (9 ML OF REMODULIN TO MIX WITH PUMP RATE OF 38 ML/24HR)
     Route: 041
  8. REMODULIN [Suspect]
     Active Substance: TREPROSTINIL
     Dosage: 0.201 ?G/KG, CONTINUING
     Route: 041
  9. ZOFRAN [Suspect]
     Active Substance: ONDANSETRON HYDROCHLORIDE
     Indication: Nausea
     Dosage: UNK
     Route: 065
     Dates: start: 2022
  10. SILDENAFIL [Concomitant]
     Active Substance: SILDENAFIL
     Indication: Product used for unknown indication
     Dosage: UNK
     Route: 065

REACTIONS (17)
  - Pulmonary arterial hypertension [Unknown]
  - Dyspnoea [Unknown]
  - Headache [Recovered/Resolved]
  - Fatigue [Not Recovered/Not Resolved]
  - Abdominal discomfort [Recovered/Resolved]
  - Nausea [Not Recovered/Not Resolved]
  - Diarrhoea [Recovered/Resolved]
  - Oxygen saturation decreased [Not Recovered/Not Resolved]
  - Illness [Recovered/Resolved]
  - Device use error [Recovered/Resolved]
  - Incorrect dose administered [Recovered/Resolved]
  - Product dose confusion [Recovered/Resolved]
  - Decreased appetite [Unknown]
  - Therapy non-responder [Unknown]
  - Loss of personal independence in daily activities [Unknown]
  - Device issue [Unknown]
  - Device failure [Unknown]

NARRATIVE: CASE EVENT DATE: 20220101
